FAERS Safety Report 5709039-7 (Version None)
Quarter: 2008Q2

REPORT INFORMATION
  Report Type: 
  Country: None (occurrence: None)
  Receive Date: 20080416
  Receipt Date: 20080416
  Transmission Date: 20081010
  Serious: Yes (Hospitalization)
  Sender: FDA-Public Use
  Company Number: None

PATIENT
  Age: 45 Year
  Sex: Female
  Weight: 92 kg

DRUGS (6)
  1. OMNIPAQUE 300 [Suspect]
     Indication: SCAN WITH CONTRAST
     Dosage: 125ML OTO IV
     Route: 042
     Dates: start: 20071208
  2. PEPCID [Concomitant]
  3. VANCOMYCIN [Concomitant]
  4. LEVAQUIN [Concomitant]
  5. LASIX [Concomitant]
  6. ZOSYN [Concomitant]

REACTIONS (1)
  - RENAL FAILURE ACUTE [None]
